FAERS Safety Report 25290633 (Version 8)
Quarter: 2025Q3

REPORT INFORMATION
  Report Type: Spontaneous
  Country: US (occurrence: US)
  Receive Date: 20250510
  Receipt Date: 20250730
  Transmission Date: 20251021
  Serious: Yes (Hospitalization, Other)
  Sender: UNITED THERAPEUTICS
  Company Number: US-UNITED THERAPEUTICS-UNT-2025-015938

PATIENT
  Age: 63 Year
  Sex: Female
  Weight: 65.76 kg

DRUGS (37)
  1. REMODULIN [Suspect]
     Active Substance: TREPROSTINIL
     Indication: Pulmonary arterial hypertension
  2. REMODULIN [Suspect]
     Active Substance: TREPROSTINIL
  3. REMODULIN [Suspect]
     Active Substance: TREPROSTINIL
     Indication: Pulmonary arterial hypertension
     Route: 041
  4. ORENITRAM [Suspect]
     Active Substance: TREPROSTINIL
     Indication: Pulmonary arterial hypertension
     Dosage: 6 MG, TID
  5. ORENITRAM [Suspect]
     Active Substance: TREPROSTINIL
     Dosage: 5 MG, Q8H
  6. ORENITRAM [Suspect]
     Active Substance: TREPROSTINIL
     Dosage: 5 MG, BID
  7. ORENITRAM [Suspect]
     Active Substance: TREPROSTINIL
     Dosage: 4 MG, BID
  8. ORENITRAM [Suspect]
     Active Substance: TREPROSTINIL
     Dosage: 5 MG, BID
  9. ORENITRAM [Suspect]
     Active Substance: TREPROSTINIL
     Dosage: 4 MG, BID
     Dates: end: 20250711
  10. ORENITRAM [Suspect]
     Active Substance: TREPROSTINIL
     Dosage: 3 MG, BID
     Dates: start: 20250711
  11. ORENITRAM [Suspect]
     Active Substance: TREPROSTINIL
  12. ORENITRAM [Suspect]
     Active Substance: TREPROSTINIL
     Indication: Pulmonary arterial hypertension
  13. ORENITRAM [Suspect]
     Active Substance: TREPROSTINIL
     Indication: Pulmonary arterial hypertension
  14. Daily multivit [Concomitant]
     Indication: Product used for unknown indication
  15. UBIQUINOL [Concomitant]
     Active Substance: UBIQUINOL
     Indication: Product used for unknown indication
  16. ASTAXANTHIN [Concomitant]
     Active Substance: ASTAXANTHIN
     Indication: Product used for unknown indication
  17. Omega [Concomitant]
     Indication: Product used for unknown indication
  18. ALPHA LIPOIC ACID [Concomitant]
     Active Substance: .ALPHA.-LIPOIC ACID
     Indication: Product used for unknown indication
  19. VITAMIN C [Concomitant]
     Active Substance: ASCORBIC ACID
     Indication: Product used for unknown indication
  20. ELIQUIS [Concomitant]
     Active Substance: APIXABAN
     Indication: Product used for unknown indication
  21. VITAMIN E [Concomitant]
     Active Substance: .ALPHA.-TOCOPHEROL
     Indication: Product used for unknown indication
  22. MAGNESIUM [Concomitant]
     Active Substance: MAGNESIUM
     Indication: Product used for unknown indication
  23. AMIODARONE HYDROCHLORIDE [Concomitant]
     Active Substance: AMIODARONE HYDROCHLORIDE
     Indication: Product used for unknown indication
  24. SILDENAFIL [Concomitant]
     Active Substance: SILDENAFIL
     Indication: Product used for unknown indication
  25. MENAQUINONE 6 [Concomitant]
     Active Substance: MENAQUINONE 6
     Indication: Product used for unknown indication
  26. OPSUMIT [Concomitant]
     Active Substance: MACITENTAN
     Indication: Product used for unknown indication
  27. DIETARY SUPPLEMENT\HERBALS\MILK THISTLE [Concomitant]
     Active Substance: MILK THISTLE
     Indication: Product used for unknown indication
  28. OXYGEN [Concomitant]
     Active Substance: OXYGEN
     Indication: Product used for unknown indication
  29. DIETARY SUPPLEMENT\RESVERATROL [Concomitant]
     Active Substance: DIETARY SUPPLEMENT\RESVERATROL
     Indication: Product used for unknown indication
  30. CRANBERRY [Concomitant]
     Active Substance: CRANBERRY
     Indication: Product used for unknown indication
  31. VITAMIN D3 [Concomitant]
     Active Substance: CHOLECALCIFEROL
     Indication: Product used for unknown indication
  32. FAMOTIDINE [Concomitant]
     Active Substance: FAMOTIDINE
     Indication: Product used for unknown indication
  33. TORSEMIDE [Concomitant]
     Active Substance: TORSEMIDE
     Indication: Product used for unknown indication
  34. ACETYLCARNITINE [Concomitant]
     Active Substance: ACETYLCARNITINE
     Indication: Product used for unknown indication
  35. LORATADINE [Concomitant]
     Active Substance: LORATADINE
     Indication: Product used for unknown indication
  36. UPTRAVI [Concomitant]
     Active Substance: SELEXIPAG
     Indication: Product used for unknown indication
  37. UPTRAVI [Concomitant]
     Active Substance: SELEXIPAG

REACTIONS (25)
  - Pulmonary arterial hypertension [Unknown]
  - Loss of consciousness [Unknown]
  - Dyspnoea [Unknown]
  - Fluid retention [Unknown]
  - Vomiting [Not Recovered/Not Resolved]
  - Flushing [Recovering/Resolving]
  - Gastroenteritis viral [Not Recovered/Not Resolved]
  - Pain [Recovering/Resolving]
  - Patient dissatisfaction with treatment [Unknown]
  - Drug tolerance decreased [Not Recovered/Not Resolved]
  - Overdose [Unknown]
  - Abdominal discomfort [Unknown]
  - Diarrhoea [Not Recovered/Not Resolved]
  - Headache [Not Recovered/Not Resolved]
  - Rash [Not Recovered/Not Resolved]
  - Pruritus [Not Recovered/Not Resolved]
  - Urticaria [Not Recovered/Not Resolved]
  - Swelling face [Recovered/Resolved]
  - Mouth swelling [Not Recovered/Not Resolved]
  - Eye swelling [Not Recovered/Not Resolved]
  - Infusion site pain [Not Recovered/Not Resolved]
  - Lymphadenopathy [Not Recovered/Not Resolved]
  - Nausea [Not Recovered/Not Resolved]
  - Abdominal distension [Unknown]
  - Oedema peripheral [Unknown]

NARRATIVE: CASE EVENT DATE: 20250717
